FAERS Safety Report 5164034-4 (Version None)
Quarter: 2006Q4

REPORT INFORMATION
  Report Type: 
  Country: None (occurrence: None)
  Receive Date: 20061124
  Receipt Date: 20061109
  Transmission Date: 20070319
  Serious: Yes (Death)
  Sender: FDA-Public Use
  Company Number: 2006139741

PATIENT
  Age: 37 Year
  Sex: 0

DRUGS (3)
  1. LITHIUM CARBONATE [Suspect]
  2. BENZTROPINE MESYLATE [Suspect]
  3. PAROXETINE [Suspect]

REACTIONS (1)
  - MEDICATION ERROR [None]
